FAERS Safety Report 4524029-8 (Version None)
Quarter: 2004Q4

REPORT INFORMATION
  Report Type: 
  Country: None (occurrence: None)
  Receive Date: 20041209
  Receipt Date: 20041130
  Transmission Date: 20050328
  Serious: Yes (Hospitalization, Other)
  Sender: FDA-Public Use
  Company Number: 2004-12-0006

PATIENT
  Age: 54 Year
  Sex: Male
  Weight: 70 kg

DRUGS (3)
  1. GENTALLINE    (GENTAMICIN SULFATE) INJECTABLE SOLUTION [Suspect]
     Indication: OSTEITIS
     Dosage: 160 MG INTRAMUSCULAR
     Route: 030
     Dates: start: 20041026, end: 20041108
  2. GENTALLINE    (GENTAMICIN SULFATE) INJECTABLE SOLUTION [Suspect]
     Indication: STAPHYLOCOCCAL INFECTION
     Dosage: 160 MG INTRAMUSCULAR
     Route: 030
     Dates: start: 20041026, end: 20041108
  3. LASILIX [Concomitant]

REACTIONS (5)
  - ASTERIXIS [None]
  - CEREBELLAR SYNDROME [None]
  - HEPATIC FAILURE [None]
  - PAIN [None]
  - VERTIGO POSITIONAL [None]
